FAERS Safety Report 24916854 (Version 1)
Quarter: 2025Q1

REPORT INFORMATION
  Report Type: Spontaneous
  Country: US (occurrence: None)
  Receive Date: 20250131
  Receipt Date: 20250131
  Transmission Date: 20250409
  Serious: No
  Sender: FDA-CTU
  Company Number: None

PATIENT
  Age: 58 Year
  Sex: Female
  Weight: 54.9 kg

DRUGS (7)
  1. RECLAST [Suspect]
     Active Substance: ZOLEDRONIC ACID
     Indication: Osteoporosis
     Dates: start: 20241113, end: 20241113
  2. Estradial patch .375 [Concomitant]
  3. PROGESTERONE [Concomitant]
     Active Substance: PROGESTERONE
  4. Multi vitamin (Centrum Women) [Concomitant]
  5. CALTRATE [Concomitant]
     Active Substance: CALCIUM CARBONATE
  6. VITAMIN D [Concomitant]
     Active Substance: VITAMIN D NOS
  7. HERBALS\TURMERIC [Concomitant]
     Active Substance: HERBALS\TURMERIC

REACTIONS (16)
  - Influenza like illness [None]
  - Fatigue [None]
  - Pain [None]
  - Myalgia [None]
  - Pain in extremity [None]
  - Neck pain [None]
  - Insomnia [None]
  - Impaired work ability [None]
  - Loss of personal independence in daily activities [None]
  - Arthralgia [None]
  - Headache [None]
  - Arthralgia [None]
  - Asthenia [None]
  - Musculoskeletal stiffness [None]
  - Pain in extremity [None]
  - Grip strength decreased [None]

NARRATIVE: CASE EVENT DATE: 20241113
